FAERS Safety Report 8710408 (Version 5)
Quarter: 2013Q2

REPORT INFORMATION
  Report Type: Spontaneous
  Country: US (occurrence: US)
  Receive Date: 20120807
  Receipt Date: 20130426
  Transmission Date: 20140414
  Serious: Yes (Hospitalization, Other)
  Sender: FDA-Public Use
  Company Number: US-MERCK-1207USA011964

PATIENT
  Sex: Male

DRUGS (9)
  1. FOSAMAX [Suspect]
     Indication: OSTEOPOROSIS
     Dosage: 70 MG, QW
     Route: 048
     Dates: start: 19980409, end: 20091212
  2. FOSAMAX [Suspect]
     Indication: OSTEOPENIA
  3. FOSAMAX [Suspect]
     Indication: OSTEOPOROSIS
     Dosage: 70 MG, QW
     Route: 048
     Dates: start: 20080317, end: 20091212
  4. FOSAMAX [Suspect]
     Indication: OSTEOPENIA
  5. VITAMINS (UNSPECIFIED) [Concomitant]
     Dosage: UNK UNK, QD
     Dates: start: 1988
  6. CALCIUM (UNSPECIFIED) [Concomitant]
     Dosage: 600 MG, QD
     Route: 048
     Dates: start: 1988
  7. CALCITROL [Concomitant]
     Dosage: .25 MICROGRAM, QOD
  8. POSTURE D [Concomitant]
  9. VITAMIN E [Concomitant]
     Dosage: 400 UNK, UNK

REACTIONS (49)
  - Femur fracture [Unknown]
  - Open reduction of fracture [Not Recovered/Not Resolved]
  - Fall [Unknown]
  - Medical device removal [Unknown]
  - Skin cancer [Unknown]
  - Haemorrhagic cerebral infarction [Unknown]
  - Spinal compression fracture [Not Recovered/Not Resolved]
  - Spinal compression fracture [Unknown]
  - Confusion postoperative [Recovered/Resolved]
  - Head injury [Unknown]
  - Fall [Unknown]
  - Depression [Unknown]
  - Mental status changes [Recovering/Resolving]
  - Insomnia [Unknown]
  - Hypoacusis [Unknown]
  - Constipation [Recovered/Resolved]
  - Back pain [Recovered/Resolved]
  - Anxiety [Unknown]
  - Calcium deficiency [Recovered/Resolved]
  - Vitamin D deficiency [Recovered/Resolved]
  - Large intestine polyp [Unknown]
  - Diverticulum [Not Recovered/Not Resolved]
  - Hypercalcaemia [Unknown]
  - Prostatomegaly [Not Recovered/Not Resolved]
  - Cataract operation [Not Recovered/Not Resolved]
  - Cerebral small vessel ischaemic disease [Unknown]
  - Sinusitis [Unknown]
  - Cerebral atrophy [Unknown]
  - Rhinitis allergic [Unknown]
  - Central nervous system lesion [Unknown]
  - Aortic stenosis [Unknown]
  - Emphysema [Unknown]
  - Cardiomegaly [Unknown]
  - Bundle branch block right [Unknown]
  - Spinal deformity [Not Recovered/Not Resolved]
  - Anaemia postoperative [Unknown]
  - Bronchitis [Not Recovered/Not Resolved]
  - Transient ischaemic attack [Unknown]
  - Nasal septum deviation [Unknown]
  - Obesity [Unknown]
  - Aortic arteriosclerosis [Unknown]
  - Arteriosclerosis coronary artery [Unknown]
  - Left ventricular hypertrophy [Unknown]
  - Hyperlipidaemia [Unknown]
  - Spinal compression fracture [Unknown]
  - Vertigo [Unknown]
  - Gastrooesophageal reflux disease [Not Recovered/Not Resolved]
  - Arthralgia [Unknown]
  - Pain in extremity [Not Recovered/Not Resolved]
